FAERS Safety Report 5293920-X (Version None)
Quarter: 2007Q2

REPORT INFORMATION
  Report Type: 
  Country: None (occurrence: None)
  Receive Date: 20070405
  Receipt Date: 20070321
  Transmission Date: 20071010
  Serious: Yes (Other)
  Sender: FDA-Public Use
  Company Number: 2006PV020928

PATIENT
  Sex: Male

DRUGS (9)
  1. BYETTA [Suspect]
     Indication: DIABETES MELLITUS NON-INSULIN-DEPENDENT
     Dosage: 10 MCG; BID; SC, 5 MCG, BID; SC
     Route: 058
     Dates: start: 20060601, end: 20060712
  2. BYETTA [Suspect]
     Indication: DIABETES MELLITUS NON-INSULIN-DEPENDENT
     Dosage: 10 MCG; BID; SC, 5 MCG, BID; SC
     Route: 058
     Dates: start: 20060713
  3. COUMADIN [Suspect]
     Indication: PROTEIN S DEFICIENCY
     Dates: end: 20060701
  4. GLYBURIDE [Concomitant]
  5. ZOLOFT [Concomitant]
  6. LOVASTATIN [Concomitant]
  7. GEMFIBROZIL [Concomitant]
  8. AVANDIA [Concomitant]
  9. MAVIK [Concomitant]

REACTIONS (2)
  - DEEP VEIN THROMBOSIS [None]
  - INTERNATIONAL NORMALISED RATIO INCREASED [None]
